FAERS Safety Report 25931697 (Version 1)
Quarter: 2025Q4

REPORT INFORMATION
  Report Type: Spontaneous
  Country: US (occurrence: None)
  Receive Date: 20251016
  Receipt Date: 20251016
  Transmission Date: 20260117
  Serious: Yes (Hospitalization)
  Sender: FDA-CTU
  Company Number: None

PATIENT
  Age: 33 Year
  Sex: Male
  Weight: 91.35 kg

DRUGS (5)
  1. OCRELIZUMAB [Suspect]
     Active Substance: OCRELIZUMAB
     Indication: Multiple sclerosis
     Dosage: OTHER FREQUENCY : EVERY 6 MONTH;?
     Route: 042
     Dates: start: 20220112
  2. ACETAMINOPHEN [Concomitant]
     Active Substance: ACETAMINOPHEN
     Dates: start: 20250403, end: 20250403
  3. DIPHENHYDRAMINE [Concomitant]
     Active Substance: DIPHENHYDRAMINE
     Dates: start: 20250403, end: 20250403
  4. FAMOTIDINE [Concomitant]
     Active Substance: FAMOTIDINE
     Dates: start: 20250403, end: 20250403
  5. METHILPREDNISOLONE [Concomitant]
     Dates: start: 20250403, end: 20250403

REACTIONS (5)
  - Dizziness [None]
  - Visual impairment [None]
  - Neutropenia [None]
  - Tachycardia [None]
  - Sepsis [None]

NARRATIVE: CASE EVENT DATE: 20250625
